FAERS Safety Report 5766608-6 (Version None)
Quarter: 2008Q2

REPORT INFORMATION
  Report Type: 
  Country: None (occurrence: None)
  Receive Date: 20080610
  Receipt Date: 20080610
  Transmission Date: 20081010
  Serious: Yes (Other)
  Sender: FDA-Public Use
  Company Number: None

PATIENT
  Age: 50 Year
  Sex: Male
  Weight: 90.7194 kg

DRUGS (2)
  1. NO AD SUNSCREEN SPF 45 SOLAR COSMETIC LABS [Suspect]
     Indication: PROPHYLAXIS
     Dosage: QID TOP
     Route: 061
     Dates: start: 20080608, end: 20080608
  2. NO AD SUNSCREEN SPF 45 SOLAR COSMETIC LABS [Suspect]
     Indication: SUNBURN
     Dosage: QID TOP
     Route: 061
     Dates: start: 20080608, end: 20080608

REACTIONS (3)
  - DRUG INEFFECTIVE [None]
  - PHARMACEUTICAL PRODUCT COMPLAINT [None]
  - SUNBURN [None]
